FAERS Safety Report 22397050 (Version 1)
Quarter: 2023Q2

REPORT INFORMATION
  Report Type: Report from Study
  Country: BG (occurrence: BG)
  Receive Date: 20230602
  Receipt Date: 20230602
  Transmission Date: 20230721
  Serious: Yes (Hospitalization)
  Sender: FDA-Public Use
  Company Number: BG-ABBVIE-5186910

PATIENT
  Age: 73 Year
  Sex: Female

DRUGS (1)
  1. SKYRIZI [Suspect]
     Active Substance: RISANKIZUMAB-RZAA
     Indication: Psoriasis
     Route: 058
     Dates: start: 202302

REACTIONS (3)
  - Hip arthroplasty [Unknown]
  - Mobility decreased [Unknown]
  - Pain [Unknown]
